FAERS Safety Report 26012095 (Version 3)
Quarter: 2025Q4

REPORT INFORMATION
  Report Type: Report from Study
  Country: CA (occurrence: CA)
  Receive Date: 20251107
  Receipt Date: 20251221
  Transmission Date: 20260117
  Serious: Yes (Death, Hospitalization, Other)
  Sender: ABBVIE
  Company Number: CA-ABBVIE-6537924

PATIENT
  Age: 66 Year
  Sex: Female

DRUGS (1)
  1. RINVOQ [Suspect]
     Active Substance: UPADACITINIB
     Indication: Rheumatoid arthritis
     Dosage: FORM STRENGTH: 15 MILLIGRAM
     Route: 048

REACTIONS (19)
  - Death [Fatal]
  - Cellulitis [Unknown]
  - Acute kidney injury [Unknown]
  - Pain [Not Recovered/Not Resolved]
  - Myocardial infarction [Unknown]
  - Anaemia [Unknown]
  - Ischaemia [Not Recovered/Not Resolved]
  - Gout [Unknown]
  - Delirium [Unknown]
  - Erythema [Unknown]
  - Chest pain [Unknown]
  - Pain in extremity [Unknown]
  - Somnolence [Unknown]
  - Dyspnoea [Unknown]
  - Chest discomfort [Unknown]
  - Pneumonia [Unknown]
  - Dilatation atrial [Unknown]
  - Aortic stenosis [Unknown]
  - Pulmonary hypertension [Unknown]

NARRATIVE: CASE EVENT DATE: 20250101
